FAERS Safety Report 7883156-8 (Version None)
Quarter: 2011Q4

REPORT INFORMATION
  Report Type: 
  Country: None (occurrence: None)
  Receive Date: 20111101
  Receipt Date: 20111101
  Transmission Date: 20120403
  Serious: Yes (Death, Hospitalization)
  Sender: FDA-Public Use
  Company Number: None

PATIENT
  Sex: Female
  Weight: 53 kg

DRUGS (2)
  1. CYTARABINE [Suspect]
     Dosage: 2170 MG
     Dates: end: 20110920
  2. DAUNORUBICIN HCL [Suspect]
     Dosage: 930 MG
     Dates: end: 20110916

REACTIONS (10)
  - PUPIL FIXED [None]
  - INTRACRANIAL PRESSURE INCREASED [None]
  - BRAIN MIDLINE SHIFT [None]
  - SUBARACHNOID HAEMORRHAGE [None]
  - UNRESPONSIVE TO STIMULI [None]
  - CEREBRAL HAEMORRHAGE [None]
  - INTRAVENTRICULAR HAEMORRHAGE [None]
  - BRADYCARDIA [None]
  - PLATELET COUNT DECREASED [None]
  - CARDIAC ARREST [None]
